FAERS Safety Report 8496734-2 (Version None)
Quarter: 2012Q3

REPORT INFORMATION
  Report Type: 
  Country: None (occurrence: None)
  Receive Date: 20120709
  Receipt Date: 20090127
  Transmission Date: 20120928
  Serious: Yes (Hospitalization, Other)
  Sender: FDA-Public Use
  Company Number: TR-ROCHE-1084807

PATIENT
  Sex: Female

DRUGS (2)
  1. XOLAIR [Suspect]
     Indication: ASTHMA
     Route: 065
     Dates: start: 20090110
  2. CORTISONE ACETATE [Concomitant]
     Route: 065

REACTIONS (6)
  - NASOPHARYNGITIS [None]
  - MENISCUS LESION [None]
  - ARTHRALGIA [None]
  - WEIGHT INCREASED [None]
  - SINUSITIS [None]
  - PAIN IN EXTREMITY [None]
